FAERS Safety Report 6500008-6 (Version None)
Quarter: 2009Q4

REPORT INFORMATION
  Report Type: 
  Country: None (occurrence: None)
  Receive Date: 20091216
  Receipt Date: 20091208
  Transmission Date: 20100525
  Serious: Yes (Hospitalization)
  Sender: FDA-Public Use
  Company Number: JP-EISAI INC.-E2090-00846-SPO-JP

PATIENT
  Sex: Male

DRUGS (11)
  1. EXCEGRAN [Suspect]
     Indication: CONVULSION
     Route: 048
     Dates: start: 20090830, end: 20090912
  2. EXCEGRAN [Suspect]
     Route: 048
     Dates: start: 20090907, end: 20090911
  3. PHENOBARBITAL TAB [Suspect]
     Indication: CONVULSION
     Route: 048
     Dates: start: 20090823, end: 20090912
  4. LIDOCAINE [Concomitant]
     Dates: start: 20090826, end: 20090829
  5. PREDONINE [Concomitant]
     Route: 048
     Dates: start: 20090823, end: 20090906
  6. MANNITOL [Concomitant]
     Dates: start: 20090823, end: 20090831
  7. DORMICUM [Concomitant]
     Indication: SEDATION
     Dates: start: 20090826
  8. ARTANE [Concomitant]
     Indication: MUSCLE TIGHTNESS
     Route: 048
     Dates: start: 20090914
  9. CERCINE [Concomitant]
     Indication: SEDATION
     Route: 048
     Dates: start: 20090914
  10. DANTRIUM [Concomitant]
     Indication: NEUROLEPTIC MALIGNANT SYNDROME
     Dates: start: 20090915, end: 20090901
  11. DANTRIUM [Concomitant]
     Dates: start: 20090901

REACTIONS (1)
  - NEUROLEPTIC MALIGNANT SYNDROME [None]
